FAERS Safety Report 13986825 (Version 2)
Quarter: 2017Q3

REPORT INFORMATION
  Report Type: Spontaneous
  Country: ES (occurrence: ES)
  Receive Date: 20170919
  Receipt Date: 20170919
  Transmission Date: 20171128
  Serious: Yes (Other)
  Sender: FDA-Public Use
  Company Number: ES-ENDO PHARMACEUTICALS INC-2017-005007

PATIENT
  Age: 55 Year
  Sex: Male
  Weight: 112 kg

DRUGS (5)
  1. EBASTEL [Concomitant]
     Active Substance: EBASTINE
     Indication: PRODUCT USED FOR UNKNOWN INDICATION
     Dosage: 10 MG, UNKNOWN
     Route: 065
     Dates: start: 20080317
  2. TESTEX [Suspect]
     Active Substance: TESTOSTERONE
     Dosage: 250/2 MG/ML, MONTHLY
     Route: 030
     Dates: start: 20170529
  3. LISINOPRIL TABLETS [Concomitant]
     Active Substance: LISINOPRIL
     Indication: PRODUCT USED FOR UNKNOWN INDICATION
     Dosage: UNK UNKNOWN, UNKNOWN
     Route: 065
     Dates: start: 20090210
  4. TESTEX [Suspect]
     Active Substance: TESTOSTERONE
     Indication: LATE ONSET HYPOGONADISM SYNDROME
     Dosage: 250/2 MG/ML, WEEKLY
     Route: 030
     Dates: start: 20150126, end: 20170529
  5. TESTIM [Suspect]
     Active Substance: TESTOSTERONE
     Indication: ERECTILE DYSFUNCTION
     Dosage: 50 MG, DAILY
     Route: 061
     Dates: start: 20141221, end: 20160930

REACTIONS (1)
  - Polycythaemia [Unknown]

NARRATIVE: CASE EVENT DATE: 20150116
